FAERS Safety Report 16400610 (Version 3)
Quarter: 2019Q3

REPORT INFORMATION
  Report Type: Spontaneous
  Country: JP (occurrence: JP)
  Receive Date: 20190606
  Receipt Date: 20190703
  Transmission Date: 20191004
  Serious: Yes (Hospitalization)
  Sender: FDA-Public Use
  Company Number: JP-HTU-2019JP019030

PATIENT
  Age: 60 Year
  Sex: Female
  Weight: 48.6 kg

DRUGS (21)
  1. ALIMTA [Suspect]
     Active Substance: PEMETREXED DISODIUM
     Indication: LUNG ADENOCARCINOMA
     Dosage: 700 MILLIGRAM, QD
     Route: 042
     Dates: start: 20190520, end: 20190520
  2. COCARL [Concomitant]
     Active Substance: ACETAMINOPHEN
     Indication: CANCER PAIN
     Dosage: 1800 MILLIGRAM, QD
     Route: 048
     Dates: start: 20190517, end: 20190524
  3. LECICARBON                         /00739901/ [Concomitant]
     Active Substance: LECITHIN\SODIUM BICARBONATE\SODIUM PHOSPHATE, MONOBASIC
     Indication: CONSTIPATION
     Dosage: 1 DOSAGE FORM, QD
     Route: 054
     Dates: start: 20190522, end: 20190522
  4. PURSENNID                          /00142207/ [Concomitant]
     Active Substance: SENNA LEAF
     Indication: CONSTIPATION
     Dosage: 2 DOSAGE FORM, QD
     Route: 048
     Dates: start: 20190522, end: 20190523
  5. ACELIO [Concomitant]
     Active Substance: ACETAMINOPHEN
     Indication: CANCER PAIN
     Dosage: UNK
     Route: 042
     Dates: start: 20190524
  6. DEXAMETHASONE. [Suspect]
     Active Substance: DEXAMETHASONE
     Indication: PROPHYLAXIS OF NAUSEA AND VOMITING
     Dosage: 9.9 MILLIGRAM, QD
     Route: 042
     Dates: start: 20190520, end: 20190520
  7. TAKEPRON [Concomitant]
     Active Substance: LANSOPRAZOLE
     Indication: GASTRITIS PROPHYLAXIS
     Dosage: 15 MILLIGRAM, QD
     Route: 048
     Dates: start: 20190516, end: 20190524
  8. MAGMITT [Concomitant]
     Active Substance: MAGNESIUM OXIDE
     Indication: CONSTIPATION
     Dosage: 990 MILLIGRAM, QD
     Route: 048
     Dates: start: 20190522, end: 20190524
  9. RIKKUNSHITO                        /08041001/ [Concomitant]
     Active Substance: HERBALS
     Indication: ABDOMINAL DISTENSION
     Dosage: 7.5 MILLIGRAM, QD
     Route: 048
     Dates: start: 20190523, end: 20190524
  10. POTACOL R [Concomitant]
     Active Substance: CALCIUM CHLORIDE\MALTOSE\POTASSIUM CHLORIDE\SODIUM CHLORIDE\SODIUM LACTATE
     Indication: FLUID REPLACEMENT
     Dosage: UNK
     Route: 042
     Dates: start: 20190524, end: 20190524
  11. LOXOPROFEN [Concomitant]
     Active Substance: LOXOPROFEN
     Indication: CANCER PAIN
     Dosage: 60 MILLIGRAM, QD
     Route: 048
     Dates: start: 20190524, end: 20190524
  12. DEXAMETHASONE. [Suspect]
     Active Substance: DEXAMETHASONE
     Dosage: 6.6 MILLIGRAM, QD
     Route: 042
     Dates: start: 20190523, end: 20190523
  13. LOXONIN [Concomitant]
     Active Substance: LOXOPROFEN SODIUM
     Indication: CANCER PAIN
     Dosage: 180 MILLIGRAM, QD
     Route: 048
     Dates: end: 20190524
  14. GLYCERIN                           /00200601/ [Concomitant]
     Active Substance: GLYCERIN
     Indication: CONSTIPATION
     Dosage: 60 MILLILITER, QD
     Route: 054
     Dates: start: 20190523, end: 20190523
  15. LUNESTA [Concomitant]
     Active Substance: ESZOPICLONE
     Indication: INSOMNIA
     Dosage: 1 MILLIGRAM, QD
     Route: 048
     Dates: end: 20190524
  16. DEXAMETHASONE. [Suspect]
     Active Substance: DEXAMETHASONE
     Dosage: 6.6 MILLIGRAM, QD
     Route: 042
     Dates: start: 20190521, end: 20190521
  17. CISPLATIN. [Suspect]
     Active Substance: CISPLATIN
     Indication: LUNG ADENOCARCINOMA
     Dosage: 105 MILLIGRAM, QD
     Route: 042
     Dates: start: 20190520, end: 20190520
  18. PANVITAN                           /05664201/ [Concomitant]
     Active Substance: VITAMINS
     Indication: PROPHYLAXIS
     Dosage: 1 GRAM, QD
     Route: 048
     Dates: start: 20190423, end: 20190524
  19. ALOXI [Suspect]
     Active Substance: PALONOSETRON HYDROCHLORIDE
     Indication: PROPHYLAXIS OF NAUSEA AND VOMITING
     Dosage: 0.75 MILLIGRAM, QD
     Route: 042
     Dates: start: 20190520, end: 20190520
  20. HYALEIN [Concomitant]
     Active Substance: HYALURONATE SODIUM
     Indication: DRY EYE
     Dosage: UNK
     Route: 031
     Dates: start: 20190522
  21. BUSCOPAN [Concomitant]
     Active Substance: BUTYLSCOPOLAMINE BROMIDE
     Indication: GASTROINTESTINAL PAIN
     Dosage: UNK
     Route: 042
     Dates: start: 20190524, end: 20190524

REACTIONS (1)
  - Colitis ischaemic [Recovered/Resolved]

NARRATIVE: CASE EVENT DATE: 20190524
